FAERS Safety Report 12353549 (Version 1)
Quarter: 2016Q2

REPORT INFORMATION
  Report Type: Spontaneous
  Country: US (occurrence: US)
  Receive Date: 20160511
  Receipt Date: 20160511
  Transmission Date: 20160815
  Serious: Yes (Other)
  Sender: FDA-Public Use
  Company Number: US-HOSPIRA-3233971

PATIENT
  Age: 43 Year
  Sex: Female
  Weight: 64.09 kg

DRUGS (1)
  1. LIDOCAINE HYDROCHLORIDE. [Suspect]
     Active Substance: LIDOCAINE HYDROCHLORIDE
     Indication: ANAESTHESIA PROCEDURE
     Dosage: UP TO 10 CC; ONE TIME; INTRAUTERINE INJECTION; PARACERVICAL BLOCK
     Route: 050
     Dates: start: 20160329

REACTIONS (9)
  - Dyspnoea [Recovered/Resolved]
  - Swelling [Unknown]
  - Pallor [Recovered/Resolved]
  - Incorrect route of drug administration [Recovered/Resolved]
  - Seizure [Unknown]
  - Dyskinesia [Recovered/Resolved]
  - Hyperhidrosis [Recovered/Resolved]
  - Nausea [Recovered/Resolved]
  - Dysphagia [Recovered/Resolved]

NARRATIVE: CASE EVENT DATE: 20160329
